FAERS Safety Report 5734046-8 (Version None)
Quarter: 2008Q2

REPORT INFORMATION
  Report Type: 
  Country: None (occurrence: None)
  Receive Date: 20080509
  Receipt Date: 20080428
  Transmission Date: 20081010
  Serious: Yes (Hospitalization)
  Sender: FDA-Public Use
  Company Number: JP-PFIZER INC-2008038179

PATIENT
  Age: 47 Year
  Sex: Female

DRUGS (3)
  1. AZULFIDINE EN-TABS [Suspect]
     Indication: RHEUMATOID ARTHRITIS
     Dosage: DAILY DOSE:500MG
     Route: 048
  2. HYPEN [Concomitant]
     Route: 048
  3. SELBEX [Concomitant]
     Route: 048

REACTIONS (1)
  - PANCYTOPENIA [None]
